FAERS Safety Report 9394481 (Version 1)
Quarter: 2013Q3

REPORT INFORMATION
  Report Type: Spontaneous
  Country: GB (occurrence: GB)
  Receive Date: 20130711
  Receipt Date: 20130711
  Transmission Date: 20140515
  Serious: Yes (Disabling)
  Sender: FDA-Public Use
  Company Number: GB-ACCORD-018442

PATIENT
  Age: 61 Year
  Sex: Female
  Weight: 63 kg

DRUGS (5)
  1. TOPIRAMATE [Suspect]
     Indication: PRODUCT USED FOR UNKNOWN INDICATION
     Dates: start: 20130524
  2. LANSOPRAZOLE [Concomitant]
     Dates: start: 20130614
  3. PIZOTIFEN [Concomitant]
     Dates: start: 20130301, end: 20130331
  4. CLENIL MODULITE [Concomitant]
     Dates: start: 20130109
  5. SALBUTAMOL [Concomitant]
     Dates: start: 20130528

REACTIONS (2)
  - Migraine [Recovered/Resolved]
  - Diplopia [Recovered/Resolved]
